FAERS Safety Report 9330293 (Version 1)
Quarter: 2013Q2

REPORT INFORMATION
  Report Type: Spontaneous
  Country: US (occurrence: US)
  Receive Date: 20130605
  Receipt Date: 20130605
  Transmission Date: 20140414
  Serious: No
  Sender: FDA-Public Use
  Company Number: US-B.I. PHARMACEUTICALS,INC./RIDGEFIELD-2013-BI-15493BP

PATIENT
  Age: 97 Year
  Sex: Female
  Weight: 41 kg

DRUGS (6)
  1. COMBIVENT [Suspect]
     Indication: DYSPNOEA
     Dosage: STRENGTH: 18 MCG / 103 MCG; DAILY DOSE: 72MCG/412MCG
     Route: 055
     Dates: start: 201302, end: 20130529
  2. COMBIVENT [Suspect]
     Indication: DYSPNOEA
     Dosage: STRENGTH: 20 MCG / 100 MCG; DAILY DOSE: 80MCG/400MCG
     Route: 055
     Dates: start: 20130530, end: 20130530
  3. EYE VITAMIN [Concomitant]
     Route: 048
  4. MULTIVITAMIN [Concomitant]
     Route: 048
  5. DIGOXIN [Concomitant]
     Indication: CARDIAC DISORDER
     Route: 048
  6. XANAX [Concomitant]
     Indication: SLEEP DISORDER
     Dosage: 0.5 MG
     Route: 048

REACTIONS (8)
  - Tremor [Recovered/Resolved]
  - Headache [Recovered/Resolved]
  - Heart rate increased [Recovered/Resolved]
  - Blood pressure increased [Recovered/Resolved]
  - Dry mouth [Recovered/Resolved]
  - Dry eye [Not Recovered/Not Resolved]
  - Eye irritation [Recovered/Resolved]
  - Product quality issue [Recovered/Resolved]
